FAERS Safety Report 23491656 (Version 2)
Quarter: 2024Q1

REPORT INFORMATION
  Report Type: Spontaneous
  Country: US (occurrence: US)
  Receive Date: 20240207
  Receipt Date: 20240207
  Transmission Date: 20240410
  Serious: No
  Sender: FDA-Public Use
  Company Number: US-Ipsen Biopharmaceuticals, Inc.-2024-01909

PATIENT
  Age: 40 Year
  Sex: Female

DRUGS (2)
  1. DYSPORT [Suspect]
     Active Substance: ABOBOTULINUMTOXINA
     Indication: Skin cosmetic procedure
     Route: 065
     Dates: start: 20240116, end: 20240116
  2. DYSPORT [Suspect]
     Active Substance: ABOBOTULINUMTOXINA
     Route: 065

REACTIONS (5)
  - Therapeutic product effect delayed [Unknown]
  - Product preparation error [Unknown]
  - Product preparation issue [Unknown]
  - Product temperature excursion issue [Unknown]
  - Off label use [Unknown]

NARRATIVE: CASE EVENT DATE: 20240101
